FAERS Safety Report 8560750-2 (Version None)
Quarter: 2012Q3

REPORT INFORMATION
  Report Type: 
  Country: None (occurrence: None)
  Receive Date: 20120802
  Receipt Date: 20120727
  Transmission Date: 20120928
  Serious: Yes (Disabling)
  Sender: FDA-Public Use
  Company Number: FR-B.I. PHARMACEUTICALS,INC./RIDGEFIELD-2012-FF-00746FF

PATIENT
  Sex: Male
  Weight: 75.5 kg

DRUGS (4)
  1. LANSOPRAZOLE [Concomitant]
     Indication: GASTROOESOPHAGEAL REFLUX DISEASE
     Dosage: 60 MG
     Route: 048
  2. ARICEPT [Concomitant]
     Indication: MEMORY IMPAIRMENT
     Dosage: 10 MG
     Route: 048
  3. PRADAXA [Suspect]
     Indication: ATRIAL FIBRILLATION
     Dosage: 220 MG
     Route: 048
     Dates: end: 20120314
  4. IRBESARTAN [Concomitant]
     Indication: HYPERTENSION
     Dosage: 150 MG
     Route: 048

REACTIONS (2)
  - TRANSIENT ISCHAEMIC ATTACK [None]
  - EPISTAXIS [None]
